FAERS Safety Report 14513603 (Version 2)
Quarter: 2019Q1

REPORT INFORMATION
  Report Type: Spontaneous
  Country: US (occurrence: US)
  Receive Date: 20180209
  Receipt Date: 20190115
  Transmission Date: 20190417
  Serious: No
  Sender: FDA-Public Use
  Company Number: US-ALLERGAN-1773909US

PATIENT
  Age: 85 Year
  Sex: Female

DRUGS (1)
  1. RESTASIS [Suspect]
     Active Substance: CYCLOSPORINE
     Indication: DRY EYE
     Dosage: 2 GTT, BID
     Route: 047
     Dates: start: 2016, end: 201705

REACTIONS (3)
  - Visual impairment [Recovered/Resolved]
  - Visual acuity reduced [Recovered/Resolved]
  - Vision blurred [Recovered/Resolved with Sequelae]

NARRATIVE: CASE EVENT DATE: 2016
